FAERS Safety Report 9132897 (Version 1)
Quarter: 2013Q1

REPORT INFORMATION
  Report Type: Report from Study
  Country: CA (occurrence: CA)
  Receive Date: 20130301
  Receipt Date: 20130301
  Transmission Date: 20140127
  Serious: Yes (Life-Threatening, Hospitalization, Other)
  Sender: FDA-Public Use
  Company Number: CA-ROCHE-1089580

PATIENT
  Age: 57 Year
  Sex: Female
  Weight: 80 kg

DRUGS (15)
  1. ACTEMRA [Suspect]
     Indication: RHEUMATOID ARTHRITIS
     Route: 042
     Dates: start: 20111205, end: 20120621
  2. ACTEMRA [Suspect]
     Route: 042
     Dates: start: 20120621
  3. ACTEMRA [Suspect]
     Route: 042
     Dates: start: 20120523
  4. ACTEMRA [Suspect]
     Route: 042
     Dates: start: 20120420
  5. ACTEMRA [Suspect]
     Route: 042
     Dates: start: 20120308
  6. ARTHROTEC [Concomitant]
  7. SYNTHROID [Concomitant]
  8. ATACAND [Concomitant]
  9. PRAVASTATIN [Concomitant]
  10. AMITRIPTYLINE [Concomitant]
     Route: 065
  11. PREDNISONE [Concomitant]
     Route: 065
  12. TYLENOL [Concomitant]
     Indication: RHEUMATOID ARTHRITIS
  13. HYDROCHLOROTHIAZIDE [Concomitant]
  14. MAGNESIUM CITRATE [Concomitant]
  15. TURMERIC [Concomitant]
     Route: 065

REACTIONS (1)
  - Intestinal perforation [Recovering/Resolving]
